FAERS Safety Report 24233238 (Version 1)
Quarter: 2024Q3

REPORT INFORMATION
  Report Type: Spontaneous
  Country: US (occurrence: US)
  Receive Date: 20240821
  Receipt Date: 20240821
  Transmission Date: 20241017
  Serious: No
  Sender: DERMAVANT SCIENCES
  Company Number: US-Dermavant-001220

PATIENT
  Sex: Female

DRUGS (2)
  1. VTAMA [Suspect]
     Active Substance: TAPINAROF
  2. ARAZLO [Concomitant]
     Active Substance: TAZAROTENE

REACTIONS (1)
  - Acne [Unknown]
